FAERS Safety Report 9335891 (Version 2)
Quarter: 2013Q2

REPORT INFORMATION
  Report Type: Spontaneous
  Country: US (occurrence: US)
  Receive Date: 20130606
  Receipt Date: 20130606
  Transmission Date: 20140414
  Serious: Yes (Hospitalization)
  Sender: FDA-Public Use
  Company Number: US-AMGEN-USASP2013013884

PATIENT
  Age: 79 Year
  Sex: Female
  Weight: 65.31 kg

DRUGS (7)
  1. PROLIA [Suspect]
     Indication: OSTEOPOROSIS POSTMENOPAUSAL
     Dosage: 60 MG, Q6MO
     Route: 058
  2. ASTEPRO [Suspect]
     Indication: RHINITIS ALLERGIC
     Dosage: 15 MG, UNK
     Route: 045
     Dates: start: 20040511
  3. HYDRALAZINE [Suspect]
     Indication: HYPERTENSION
     Dosage: 50 MG, UNK
     Route: 048
     Dates: start: 20120228
  4. ZESTRIL [Suspect]
     Indication: HYPERTENSION
     Dosage: 20 MG, UNK
     Route: 048
     Dates: start: 20090411
  5. CALAN /00014302/ [Suspect]
     Indication: HYPERTENSION
     Dosage: 120 MG, UNK
     Dates: start: 20121110
  6. SPIRIVA [Suspect]
     Indication: CHRONIC OBSTRUCTIVE PULMONARY DISEASE
  7. XOPENEX [Suspect]
     Indication: CHRONIC OBSTRUCTIVE PULMONARY DISEASE

REACTIONS (5)
  - Pneumonia [Unknown]
  - Bronchitis [Unknown]
  - Herpes zoster [Unknown]
  - Pain [Unknown]
  - Rash [Unknown]
